FAERS Safety Report 5872887-7 (Version None)
Quarter: 2008Q3

REPORT INFORMATION
  Report Type: 
  Country: None (occurrence: None)
  Receive Date: 20080905
  Receipt Date: 20080825
  Transmission Date: 20090109
  Serious: Yes (Other)
  Sender: FDA-Public Use
  Company Number: GB-PFIZER INC-2008071073

PATIENT
  Age: 52 Year
  Sex: Female
  Weight: 63 kg

DRUGS (6)
  1. HYDROCORTISONE SODIUM SUCCINATE [Suspect]
     Indication: HYPOTHALAMO-PITUITARY DISORDER
     Route: 048
     Dates: start: 20080809, end: 20080809
  2. ELLESTE-DUET [Concomitant]
     Indication: HORMONE REPLACEMENT THERAPY
     Route: 048
  3. GARLIC [Concomitant]
     Dosage: TEXT:1DF
     Route: 048
  4. GROWTH HORMONE AB [Concomitant]
  5. SIMVASTATIN [Concomitant]
     Indication: BLOOD CHOLESTEROL INCREASED
     Route: 048
  6. THYROXINE [Concomitant]
     Indication: HYPOTHYROIDISM
     Route: 048

REACTIONS (5)
  - CHEST DISCOMFORT [None]
  - EYE SWELLING [None]
  - HEADACHE [None]
  - PALPITATIONS [None]
  - THROAT TIGHTNESS [None]
